FAERS Safety Report 5902690-0 (Version None)
Quarter: 2008Q3

REPORT INFORMATION
  Report Type: 
  Country: None (occurrence: None)
  Receive Date: 20080930
  Receipt Date: 20080922
  Transmission Date: 20090109
  Serious: Yes (Other)
  Sender: FDA-Public Use
  Company Number: US-SP-2008-02160

PATIENT
  Age: 39 Year
  Sex: Female

DRUGS (6)
  1. IMOVAX RABIES I.D. [Suspect]
     Indication: ACCIDENTAL EXPOSURE
     Route: 030
     Dates: start: 20080624
  2. IMOVAX RABIES I.D. [Suspect]
     Route: 030
     Dates: start: 20080620
  3. IMOVAX RABIES I.D. [Suspect]
     Route: 030
     Dates: start: 20080617
  4. IMOGAM RABIES [Suspect]
     Indication: ACCIDENTAL EXPOSURE
     Route: 030
     Dates: start: 20080617
  5. BIRTH CONTROL [Concomitant]
  6. AMBIEN [Concomitant]

REACTIONS (5)
  - HYPOAESTHESIA [None]
  - INJECTION SITE INFLAMMATION [None]
  - MYALGIA [None]
  - OEDEMA PERIPHERAL [None]
  - RASH PRURITIC [None]
